FAERS Safety Report 25714520 (Version 1)
Quarter: 2025Q3

REPORT INFORMATION
  Report Type: Spontaneous
  Country: AU (occurrence: AU)
  Receive Date: 20250822
  Receipt Date: 20250822
  Transmission Date: 20251021
  Serious: Yes (Other)
  Sender: ACCORD
  Company Number: None

PATIENT
  Age: 19 Year
  Sex: Female

DRUGS (3)
  1. METHOTREXATE SODIUM [Suspect]
     Active Substance: METHOTREXATE SODIUM
     Indication: Product used for unknown indication
  2. HUMIRA [Concomitant]
     Active Substance: ADALIMUMAB
  3. INFLIXIMAB [Concomitant]
     Active Substance: INFLIXIMAB

REACTIONS (1)
  - Uveitis [Unknown]
